FAERS Safety Report 21136873 (Version 1)
Quarter: 2022Q3

REPORT INFORMATION
  Report Type: Spontaneous
  Country: US (occurrence: None)
  Receive Date: 20220726
  Receipt Date: 20220726
  Transmission Date: 20221027
  Serious: Yes (Other)
  Sender: FDA-Public Use
  Company Number: None

PATIENT
  Age: 75 Year
  Sex: Male

DRUGS (1)
  1. CAPECITABINE [Suspect]
     Active Substance: CAPECITABINE
     Route: 048
     Dates: start: 202207

REACTIONS (5)
  - Off label use [None]
  - COVID-19 [None]
  - Product dose omission issue [None]
  - Immunochemotherapy [None]
  - Radiotherapy [None]

NARRATIVE: CASE EVENT DATE: 20220726
